FAERS Safety Report 12551331 (Version 2)
Quarter: 2016Q3

REPORT INFORMATION
  Report Type: Spontaneous
  Country: US (occurrence: US)
  Receive Date: 20160713
  Receipt Date: 20160715
  Transmission Date: 20161109
  Serious: No
  Sender: FDA-Public Use
  Company Number: US-TEVA-657795USA

PATIENT
  Age: 33 Year
  Sex: Female

DRUGS (2)
  1. ZECUITY [Suspect]
     Active Substance: SUMATRIPTAN SUCCINATE
     Route: 062
     Dates: start: 201603, end: 201603
  2. ZECUITY [Suspect]
     Active Substance: SUMATRIPTAN SUCCINATE
     Dosage: SHE HAD USED 7-8 TDS PREVIOUSLY
     Route: 062
     Dates: start: 20160512, end: 20160512

REACTIONS (5)
  - Application site rash [Recovered/Resolved]
  - Application site dryness [Recovered/Resolved]
  - Product physical issue [Unknown]
  - Application site erythema [Recovered/Resolved]
  - Product adhesion issue [Unknown]

NARRATIVE: CASE EVENT DATE: 201603
